FAERS Safety Report 8848324 (Version 3)
Quarter: 2012Q4

REPORT INFORMATION
  Report Type: 
  Country: PL (occurrence: PL)
  Receive Date: 20121019
  Receipt Date: 20121121
  Transmission Date: 20130627
  Serious: Yes (Hospitalization, Other)
  Sender: FDA-Public Use
  Company Number: PL-AMGEN-POLSP2012065425

PATIENT
  Age: 64 Year
  Sex: Female
  Weight: 50.5 kg

DRUGS (8)
  1. PROLIA [Suspect]
     Indication: OSTEOPOROSIS
     Dosage: 60 mg, q6mo
     Route: 058
     Dates: start: 20120614
  2. MIMPARA [Suspect]
     Indication: HYPERPARATHYROIDISM SECONDARY
     Dosage: 30 mg, qd
     Route: 048
     Dates: start: 20100928, end: 20120614
  3. CALCIUM CARBONICUM NMD GROSSIST [Concomitant]
     Dosage: 1 g, tid
     Route: 048
  4. TRITACE [Concomitant]
     Dosage: 5 mg, bid
     Route: 048
  5. AGEN [Concomitant]
     Dosage: 10 mg, qd
     Route: 048
  6. THYROZOL [Concomitant]
     Dosage: 5 mg, qd
     Route: 048
  7. ALFADIOL [Concomitant]
     Dosage: 0.5 mg, qd
     Route: 048
  8. CORONAL                            /00133102/ [Concomitant]
     Dosage: 5 mg, UNK
     Route: 048

REACTIONS (3)
  - Blood parathyroid hormone increased [Recovered/Resolved]
  - Muscle spasms [Recovered/Resolved]
  - Hypocalcaemia [Recovered/Resolved]
